FAERS Safety Report 20613348 (Version 2)
Quarter: 2023Q4

REPORT INFORMATION
  Report Type: Spontaneous
  Country: US (occurrence: US)
  Receive Date: 20220318
  Receipt Date: 20231129
  Transmission Date: 20240109
  Serious: No
  Sender: FDA-Public Use
  Company Number: US-SEPTODONT-2022006715

PATIENT

DRUGS (1)
  1. LIGNOSPAN STANDARD [Suspect]
     Active Substance: EPINEPHRINE BITARTRATE\LIDOCAINE HYDROCHLORIDE
     Indication: Dental local anaesthesia
     Dosage: MULTIPLE INJECTIONS
     Route: 004

REACTIONS (1)
  - Drug ineffective [Unknown]
